FAERS Safety Report 20301695 (Version 1)
Quarter: 2022Q1

REPORT INFORMATION
  Report Type: Report from Study
  Country: GB (occurrence: GB)
  Receive Date: 20220105
  Receipt Date: 20220105
  Transmission Date: 20220424
  Serious: Yes (Hospitalization)
  Sender: FDA-Public Use
  Company Number: GB-SERVIER-S21014589

PATIENT

DRUGS (2)
  1. IVOSIDENIB [Suspect]
     Active Substance: IVOSIDENIB
     Indication: Acute myeloid leukaemia refractory
     Dosage: UNK
     Route: 065
     Dates: start: 2021, end: 20211006
  2. IVOSIDENIB [Suspect]
     Active Substance: IVOSIDENIB
     Dosage: 250 MG, QD
     Route: 065
     Dates: start: 20211006

REACTIONS (1)
  - Myocardial infarction [Recovered/Resolved]

NARRATIVE: CASE EVENT DATE: 20210901
